FAERS Safety Report 7521289-6 (Version None)
Quarter: 2011Q2

REPORT INFORMATION
  Report Type: 
  Country: None (occurrence: None)
  Receive Date: 20110524
  Receipt Date: 20110510
  Transmission Date: 20111010
  Serious: Yes (Other)
  Sender: FDA-Public Use
  Company Number: JPI-P-014300

PATIENT
  Age: 39 Year
  Sex: Female

DRUGS (2)
  1. XYREM [Suspect]
     Indication: CATAPLEXY
     Dosage: 3 GM (1.5 GM,2 IN 1 D) ,ORAL
     Route: 048
     Dates: start: 20110223
  2. TRAZODONE HCL [Suspect]
     Indication: SLEEP DISORDER
     Dates: end: 20110222

REACTIONS (7)
  - WRIST FRACTURE [None]
  - ABASIA [None]
  - JOINT INJURY [None]
  - FALL [None]
  - BACK PAIN [None]
  - INSOMNIA [None]
  - JOINT SPRAIN [None]
